FAERS Safety Report 5724436-1 (Version None)
Quarter: 2008Q2

REPORT INFORMATION
  Report Type: 
  Country: None (occurrence: None)
  Receive Date: 20080428
  Receipt Date: 20080416
  Transmission Date: 20081010
  Serious: Yes (Disabling)
  Sender: FDA-Public Use
  Company Number: 082-20785-08041367

PATIENT
  Age: 64 Year
  Sex: Female

DRUGS (4)
  1. THALIDOMIDE [Suspect]
     Indication: MULTIPLE MYELOMA
     Dosage: 50 MG, DAILY, ORAL; ORAL
     Route: 048
     Dates: start: 20080203
  2. RESPRIM (BACTRIM) [Concomitant]
  3. MELPHALAN (MELPHALAN) [Concomitant]
  4. PREDNISONE TAB [Concomitant]

REACTIONS (1)
  - BALANCE DISORDER [None]
